FAERS Safety Report 16140114 (Version 1)
Quarter: 2019Q2

REPORT INFORMATION
  Report Type: Spontaneous
  Country: FR (occurrence: FR)
  Receive Date: 20190401
  Receipt Date: 20190401
  Transmission Date: 20190711
  Serious: Yes (Death, Life-Threatening)
  Sender: FDA-Public Use
  Company Number: FR-TEVA-2019-FR-1031583

PATIENT
  Age: 32 Year
  Sex: Male
  Weight: 54 kg

DRUGS (6)
  1. SOLU-MEDROL [Concomitant]
     Active Substance: METHYLPREDNISOLONE SODIUM SUCCINATE
     Route: 042
     Dates: start: 20060824
  2. ENDOXAN [Suspect]
     Active Substance: CYCLOPHOSPHAMIDE
     Indication: CHORIOCARCINOMA
     Dosage: 1900 MILLIGRAM DAILY;
     Route: 042
     Dates: start: 20060829, end: 20060829
  3. GRANOCYTE 34 [Suspect]
     Active Substance: LENOGRASTIM
     Indication: HAEMATOPOIETIC STEM CELL MOBILISATION
  4. ETOPOSIDE TEVA [Suspect]
     Active Substance: ETOPOSIDE
     Indication: CHORIOCARCINOMA
     Route: 042
     Dates: start: 20060829, end: 20060829
  5. GRANOCYTE 34 [Suspect]
     Active Substance: LENOGRASTIM
     Indication: NEUTROPENIA
     Dosage: 526 MICROGRAM DAILY; 263 UG, BID
     Route: 042
     Dates: start: 20060831, end: 20060907
  6. ADRIBLASTINE [Suspect]
     Active Substance: DOXORUBICIN
     Indication: CHORIOCARCINOMA
     Route: 042
     Dates: start: 20060829, end: 20060829

REACTIONS (7)
  - Cerebral ischaemia [Unknown]
  - Brain oedema [Unknown]
  - Pyrexia [Fatal]
  - Acute respiratory distress syndrome [Fatal]
  - Bacterial infection [Unknown]
  - Interstitial lung disease [Fatal]
  - Hypoxia [Fatal]

NARRATIVE: CASE EVENT DATE: 20060902
